FAERS Safety Report 10785279 (Version 2)
Quarter: 2015Q1

REPORT INFORMATION
  Report Type: Report from Study
  Country: BE (occurrence: BE)
  Receive Date: 20150211
  Receipt Date: 20150219
  Transmission Date: 20150721
  Serious: Yes (Hospitalization)
  Sender: FDA-Public Use
  Company Number: BE-AMGEN-BELNI2015011282

PATIENT
  Age: 58 Year
  Sex: Female

DRUGS (3)
  1. CYCLOPHOSPHAMIDE. [Concomitant]
     Active Substance: CYCLOPHOSPHAMIDE
     Dosage: 120 MG, Q2WK
     Route: 042
     Dates: start: 20140811, end: 20140923
  2. PEGFILGRASTIM [Suspect]
     Active Substance: PEGFILGRASTIM
     Indication: PROPHYLAXIS
     Dosage: 0.6 ML, Q2WK
     Route: 058
     Dates: start: 20140811
  3. EPIRUBICIN [Concomitant]
     Active Substance: EPIRUBICIN
     Dosage: 180 MG, Q2WK
     Route: 042
     Dates: start: 20140811, end: 20140923

REACTIONS (1)
  - Febrile neutropenia [Recovered/Resolved]

NARRATIVE: CASE EVENT DATE: 20140819
